FAERS Safety Report 5860179-1 (Version None)
Quarter: 2008Q3

REPORT INFORMATION
  Report Type: 
  Country: None (occurrence: None)
  Receive Date: 20080827
  Receipt Date: 20080815
  Transmission Date: 20090109
  Serious: Yes (Hospitalization, Other)
  Sender: FDA-Public Use
  Company Number: US-PFIZER INC-2008070913

PATIENT
  Age: 61 Year
  Sex: Male

DRUGS (14)
  1. PREGABALIN [Suspect]
     Indication: NEURALGIA
     Route: 048
  2. SPIRONOLACTONE [Concomitant]
  3. ACETYLSALICYLIC ACID SRT [Concomitant]
  4. FUROSEMIDE [Concomitant]
  5. HYDRALAZINE HCL [Concomitant]
  6. ISOSORBIDE DINITRATE [Concomitant]
  7. LOSARTAN POTASSIUM [Concomitant]
  8. GLYBURIDE [Concomitant]
  9. BISOPROLOL FUMARATE [Concomitant]
  10. PRAMIPEXOLE DIHYDROCHLORIDE [Concomitant]
  11. TIOTROPIUM [Concomitant]
  12. FLUTICASONE PROPIONATE [Concomitant]
  13. PRAVASTATIN [Concomitant]
  14. ALBUTEROL [Concomitant]

REACTIONS (1)
  - CARDIAC FAILURE [None]
